FAERS Safety Report 25323972 (Version 2)
Quarter: 2025Q3

REPORT INFORMATION
  Report Type: Spontaneous
  Country: CA (occurrence: CA)
  Receive Date: 20250516
  Receipt Date: 20250711
  Transmission Date: 20251021
  Serious: Yes (Other)
  Sender: PFIZER
  Company Number: CA-PFIZER INC-202500099303

PATIENT
  Age: 63 Year
  Sex: Male

DRUGS (20)
  1. ABRILADA [Suspect]
     Active Substance: ADALIMUMAB-AFZB
     Indication: Ankylosing spondylitis
     Route: 058
     Dates: start: 20250423
  2. ABRILADA [Suspect]
     Active Substance: ADALIMUMAB-AFZB
     Route: 058
     Dates: start: 20250508
  3. BACLOFEN [Concomitant]
     Active Substance: BACLOFEN
  4. CEQUA [Concomitant]
     Active Substance: CYCLOSPORINE
  5. DEXLANSOPRAZOLE [Concomitant]
     Active Substance: DEXLANSOPRAZOLE
  6. FAMOTIDINE [Concomitant]
     Active Substance: FAMOTIDINE
  7. FENTANYL [Concomitant]
     Active Substance: FENTANYL
  8. HYDROMORPHONE [Concomitant]
     Active Substance: HYDROMORPHONE
  9. HYDROMORPHONE [Concomitant]
     Active Substance: HYDROMORPHONE
  10. HYDROXYZINE [Concomitant]
     Active Substance: HYDROXYZINE HYDROCHLORIDE
  11. LEMBOREXANT [Concomitant]
     Active Substance: LEMBOREXANT
  12. MOVANTIK [Concomitant]
     Active Substance: NALOXEGOL OXALATE
  13. ONDANSETRON [Concomitant]
     Active Substance: ONDANSETRON
  14. OXYCODONE [Concomitant]
     Active Substance: OXYCODONE
  15. QUININE [Concomitant]
     Active Substance: QUININE
  16. RIZATRIPTAN [Concomitant]
     Active Substance: RIZATRIPTAN
  17. TOPIRAMATE [Concomitant]
     Active Substance: TOPIRAMATE
  18. TAMSULOSIN [Concomitant]
     Active Substance: TAMSULOSIN
  19. TRAZODONE [Concomitant]
     Active Substance: TRAZODONE HYDROCHLORIDE
  20. ULORIC [Concomitant]
     Active Substance: FEBUXOSTAT

REACTIONS (2)
  - Fall [Recovering/Resolving]
  - Head injury [Recovering/Resolving]

NARRATIVE: CASE EVENT DATE: 20250501
